FAERS Safety Report 24810495 (Version 3)
Quarter: 2025Q1

REPORT INFORMATION
  Report Type: Report from Study
  Country: CN (occurrence: CN)
  Receive Date: 20250106
  Receipt Date: 20250117
  Transmission Date: 20250409
  Serious: Yes (Other)
  Sender: PFIZER
  Company Number: CN-TAKEDA-2023TUS016626

PATIENT
  Age: 18 Year
  Sex: Male
  Weight: 54 kg

DRUGS (16)
  1. ADCETRIS [Suspect]
     Active Substance: BRENTUXIMAB VEDOTIN
     Indication: Hodgkin^s disease nodular sclerosis
     Route: 041
     Dates: start: 20230209
  2. ADCETRIS [Suspect]
     Active Substance: BRENTUXIMAB VEDOTIN
     Dosage: 50 MILLIGRAM, Q3WEEKS
     Route: 041
     Dates: start: 20230525
  3. ADCETRIS [Suspect]
     Active Substance: BRENTUXIMAB VEDOTIN
     Route: 041
     Dates: start: 20230610
  4. ADCETRIS [Suspect]
     Active Substance: BRENTUXIMAB VEDOTIN
     Route: 041
     Dates: start: 2023
  5. VINDESINE [Suspect]
     Active Substance: VINDESINE
     Indication: Lymphoma
     Dosage: 4 MILLIGRAM, QD
     Route: 042
     Dates: start: 20230209, end: 20230627
  6. DACARBAZINE [Suspect]
     Active Substance: DACARBAZINE
     Indication: Lymphoma
     Dosage: 600 MILLIGRAM, QD
     Route: 042
     Dates: start: 20230209, end: 20230627
  7. DOXORUBICIN HYDROCHLORIDE [Suspect]
     Active Substance: DOXORUBICIN HYDROCHLORIDE
     Indication: Lymphoma
     Dosage: 20 MILLIGRAM, QD
     Route: 042
     Dates: start: 20230209, end: 20230209
  8. EPIRUBICIN HYDROCHLORIDE [Concomitant]
     Active Substance: EPIRUBICIN HYDROCHLORIDE
     Indication: Lymphoma
     Dosage: 56 MILLIGRAM, QD
     Route: 042
     Dates: start: 20230503, end: 20230503
  9. IBUPROFEN [Concomitant]
     Active Substance: IBUPROFEN
     Indication: Pyrexia
     Route: 048
     Dates: start: 202302
  10. ACETAMINOPHEN [Concomitant]
     Active Substance: ACETAMINOPHEN
     Indication: Pyrexia
     Dosage: UNK UNK, QD
     Route: 048
     Dates: start: 20230207
  11. LEUCOGEN [Concomitant]
     Active Substance: LEUCOGEN
     Indication: White blood cell count increased
     Dosage: 20 MILLIGRAM, TID
     Route: 048
     Dates: start: 20230208
  12. CEFACLOR [Concomitant]
     Active Substance: CEFACLOR
     Indication: Infection prophylaxis
     Dosage: UNK UNK, BID
     Route: 048
     Dates: start: 20230208
  13. CEFACLOR [Concomitant]
     Active Substance: CEFACLOR
     Dosage: UNK UNK, BID
     Route: 048
     Dates: start: 20230208
  14. RUO SHAN [Concomitant]
     Indication: Antiemetic supportive care
     Dosage: UNK UNK, QD
     Route: 048
     Dates: start: 20230208
  15. VALACYCLOVIR HYDROCHLORIDE [Concomitant]
     Active Substance: VALACYCLOVIR HYDROCHLORIDE
     Indication: Antiviral prophylaxis
     Dosage: 0.3 GRAM, BID
     Route: 048
     Dates: start: 20230402
  16. SULFAMETHOXAZOLE [Concomitant]
     Active Substance: SULFAMETHOXAZOLE
     Indication: Antifungal prophylaxis
     Dosage: UNK UNK, QD
     Route: 048
     Dates: start: 20230402

REACTIONS (7)
  - Drug-induced liver injury [Unknown]
  - Productive cough [Not Recovered/Not Resolved]
  - Upper respiratory tract infection [Unknown]
  - Dermatitis allergic [Unknown]
  - Ear congestion [Unknown]
  - Fungal skin infection [Unknown]
  - Off label use [Recovered/Resolved]

NARRATIVE: CASE EVENT DATE: 20230101
